FAERS Safety Report 16201390 (Version 1)
Quarter: 2019Q2

REPORT INFORMATION
  Report Type: Report from Study
  Country: US (occurrence: US)
  Receive Date: 20190416
  Receipt Date: 20190416
  Transmission Date: 20190711
  Serious: No
  Sender: FDA-Public Use
  Company Number: US-ROCHE-2304100

PATIENT
  Sex: Female
  Weight: 73.09 kg

DRUGS (2)
  1. OCREVUS [Suspect]
     Active Substance: OCRELIZUMAB
     Indication: RELAPSING MULTIPLE SCLEROSIS
     Dosage: ONGOING; UNKNOWN
     Route: 065
     Dates: start: 20180411
  2. GABAPENTINE [Concomitant]
     Active Substance: GABAPENTIN
     Dosage: 2 CAPSULES 3 TIMES PER DAY
     Route: 065

REACTIONS (1)
  - Nasopharyngitis [Unknown]
